FAERS Safety Report 20213608 (Version 1)
Quarter: 2021Q4

REPORT INFORMATION
  Report Type: Spontaneous
  Country: FR (occurrence: FR)
  Receive Date: 20211221
  Receipt Date: 20211221
  Transmission Date: 20220303
  Serious: Yes (Death)
  Sender: FDA-Public Use
  Company Number: None

PATIENT
  Age: 76 Year
  Sex: Male
  Weight: 58 kg

DRUGS (7)
  1. AMIODARONE [Suspect]
     Active Substance: AMIODARONE
     Indication: Atrial fibrillation
     Dosage: UNIT DOSE : 1 DF
     Route: 048
     Dates: start: 20200207, end: 20210315
  2. AMIODARONE [Suspect]
     Active Substance: AMIODARONE
     Dosage: UNIT DOSE : 1 DF
     Route: 048
     Dates: start: 20210804, end: 20211010
  3. BISOPROLOL [Concomitant]
     Active Substance: BISOPROLOL
     Indication: Atrial fibrillation
     Dosage: UNIT DOSE : 1 DF
     Route: 048
     Dates: start: 20210315, end: 20211010
  4. RISPERIDONE [Concomitant]
     Active Substance: RISPERIDONE
     Indication: Mental disorder
     Dosage: LONG COURSE , UNIT DOSE : 1 DF
     Route: 048
  5. EXELON [Concomitant]
     Active Substance: RIVASTIGMINE TARTRATE
     Indication: Cognitive disorder
     Dosage: LONG COURSE , UNIT DOSE : 1 DF
     Route: 048
  6. ALFUZOSIN [Concomitant]
     Active Substance: ALFUZOSIN
     Dosage: LONG COURSE , UNIT DOSE : 1 DF
     Route: 048
  7. ELIQUIS [Concomitant]
     Active Substance: APIXABAN
     Indication: Atrial fibrillation
     Dosage: 1 DF
     Route: 048
     Dates: start: 20210804

REACTIONS (4)
  - Immune-mediated myositis [Fatal]
  - Cyanosis [Fatal]
  - Interstitial lung disease [Fatal]
  - Sjogren^s syndrome [Fatal]

NARRATIVE: CASE EVENT DATE: 20210801
